FAERS Safety Report 8228375-6 (Version None)
Quarter: 2012Q1

REPORT INFORMATION
  Report Type: 
  Country: None (occurrence: None)
  Receive Date: 20120322
  Receipt Date: 20110923
  Transmission Date: 20120608
  Serious: Yes (Hospitalization)
  Sender: FDA-Public Use
  Company Number: US-BRISTOL-MYERS SQUIBB COMPANY-15993892

PATIENT
  Sex: Male

DRUGS (5)
  1. BENADRYL [Concomitant]
  2. ERBITUX [Suspect]
     Dosage: DOSE:700MG
     Route: 042
     Dates: start: 20110721
  3. CARBOPLATIN [Suspect]
     Route: 042
  4. KYTRIL [Concomitant]
     Route: 042
  5. DECADRON [Concomitant]
     Route: 042

REACTIONS (4)
  - SWELLING FACE [None]
  - PRURITUS [None]
  - OEDEMA [None]
  - CHEST DISCOMFORT [None]
